FAERS Safety Report 9854104 (Version 1)
Quarter: 2014Q1

REPORT INFORMATION
  Report Type: Report from Study
  Country: US (occurrence: US)
  Receive Date: 20140129
  Receipt Date: 20140129
  Transmission Date: 20141002
  Serious: Yes (Hospitalization)
  Sender: FDA-Public Use
  Company Number: US-ALEXION-A201304018

PATIENT
  Age: 1 Year
  Sex: Male
  Weight: 7.18 kg

DRUGS (4)
  1. ECULIZUMAB [Suspect]
     Indication: HAEMOLYTIC URAEMIC SYNDROME
     Dosage: 300 MG, Q3WEEKS
     Route: 042
     Dates: start: 20130503
  2. HYOSCYAMINE [Concomitant]
     Indication: ABDOMINAL PAIN
     Dosage: 0.125 MG, Q4H, PRN
     Route: 048
  3. HYCET [Concomitant]
     Indication: PAIN
     Dosage: 7.5/325 MG Q4H PRN
  4. PENICILLIN                         /00000901/ [Concomitant]
     Indication: PRODUCT USED FOR UNKNOWN INDICATION
     Dosage: 125 MG, BID
     Route: 048

REACTIONS (2)
  - Pyrexia [Recovered/Resolved]
  - Viral infection [Unknown]
